FAERS Safety Report 10561442 (Version 2)
Quarter: 2014Q4

REPORT INFORMATION
  Report Type: Spontaneous
  Country: FR (occurrence: FR)
  Receive Date: 20141103
  Receipt Date: 20141114
  Transmission Date: 20150529
  Serious: Yes (Hospitalization)
  Sender: FDA-Public Use
  Company Number: FR-PFIZER INC-2014301297

PATIENT
  Age: 77 Year
  Sex: Female

DRUGS (16)
  1. DIGOXINE [Suspect]
     Active Substance: DIGOXIN
     Dosage: UNK
     Route: 048
     Dates: start: 201408, end: 201408
  2. PREVISCAN [Concomitant]
     Active Substance: FLUINDIONE
     Dosage: UNK
     Dates: start: 20140924
  3. LASILIX [Concomitant]
     Active Substance: FUROSEMIDE
     Dosage: 40 MG, 1X/DAY
  4. LASILIX [Concomitant]
     Active Substance: FUROSEMIDE
     Dosage: 125 MG, UNK
  5. DOBUTAMINE [Suspect]
     Active Substance: DOBUTAMINE\DOBUTAMINE HYDROCHLORIDE
     Dosage: 576000 ?G, DAILY
     Route: 041
     Dates: start: 201408, end: 201408
  6. PREVISCAN [Concomitant]
     Active Substance: FLUINDIONE
     Indication: ATRIAL FIBRILLATION
     Dosage: 1.25 DF, DAILY, DF=20MG
     Dates: start: 201407, end: 20140915
  7. ALEPSAL [Concomitant]
     Active Substance: CAFFEINE\PHENOBARBITAL
     Dosage: 100 MG, 1X/DAY
     Dates: start: 19900101, end: 20140920
  8. VANCOMYCINE [Suspect]
     Active Substance: VANCOMYCIN
     Indication: STAPHYLOCOCCAL BACTERAEMIA
     Dosage: 125 MG, DAILY
     Route: 041
     Dates: start: 20140825, end: 20140913
  9. ATROVENT [Suspect]
     Active Substance: IPRATROPIUM BROMIDE
     Dosage: UNK
     Route: 045
     Dates: start: 201408, end: 201408
  10. CORDARONE [Concomitant]
     Active Substance: AMIODARONE HYDROCHLORIDE
     Indication: ATRIAL FIBRILLATION
     Dosage: 400 MG, 2X/DAY
     Dates: start: 20140715
  11. GENTAMICIN SULFATE. [Suspect]
     Active Substance: GENTAMICIN SULFATE
     Indication: STAPHYLOCOCCAL INFECTION
     Dosage: UNK
     Route: 042
     Dates: start: 20140825, end: 20140913
  12. EUPRESSYL [Suspect]
     Active Substance: URAPIDIL
     Indication: HYPERTENSION
     Dosage: 6 MG, EVERY HOUR (144MG)
     Route: 041
     Dates: start: 20140815, end: 20140820
  13. BRICANYL [Suspect]
     Active Substance: TERBUTALINE SULFATE
     Dosage: UNK
     Route: 045
     Dates: start: 201408, end: 201408
  14. RAMIPRIL. [Suspect]
     Active Substance: RAMIPRIL
     Dosage: UNK
     Route: 048
     Dates: start: 201408, end: 201408
  15. RISORDAN [Suspect]
     Active Substance: ISOSORBIDE DINITRATE
     Dosage: 6 MG, EVERY HOUR (144MG)
     Route: 041
     Dates: start: 20140815, end: 201409
  16. TEGRETOL [Concomitant]
     Active Substance: CARBAMAZEPINE
     Dosage: 400 MG, 1X/DAY
     Dates: start: 19900101, end: 20140920

REACTIONS (3)
  - Acute kidney injury [Recovered/Resolved]
  - Drug reaction with eosinophilia and systemic symptoms [Recovered/Resolved]
  - Overdose [Recovered/Resolved]

NARRATIVE: CASE EVENT DATE: 20140915
